FAERS Safety Report 9236944 (Version 2)
Quarter: 2013Q2

REPORT INFORMATION
  Report Type: Spontaneous
  Country: JP (occurrence: JP)
  Receive Date: 20130417
  Receipt Date: 20130515
  Transmission Date: 20140414
  Serious: Yes (Hospitalization)
  Sender: FDA-Public Use
  Company Number: PHHY2013JP005497

PATIENT
  Age: 32 Year
  Sex: Male

DRUGS (6)
  1. CICLOSPORIN [Suspect]
     Indication: DERMATITIS ATOPIC
     Dosage: 150 MG, DAILY
     Route: 048
  2. CICLOSPORIN [Suspect]
     Dosage: 200 MG, DAILY
     Route: 048
     Dates: start: 20090729
  3. ANTEBATE [Concomitant]
  4. PROTOPIC [Concomitant]
  5. DERMOVATE [Concomitant]
     Route: 061
  6. CORTICOSTEROIDS [Concomitant]
     Dates: start: 20110119

REACTIONS (9)
  - Social avoidant behaviour [Recovering/Resolving]
  - Anxiety [Recovering/Resolving]
  - Depression [Recovering/Resolving]
  - Abnormal behaviour [Recovering/Resolving]
  - Dermatitis atopic [Recovering/Resolving]
  - Lichenification [Recovering/Resolving]
  - Pruritus [Recovering/Resolving]
  - Erythema [Recovering/Resolving]
  - Drug ineffective [Recovering/Resolving]
